FAERS Safety Report 8334180-2 (Version None)
Quarter: 2012Q2

REPORT INFORMATION
  Report Type: 
  Country: None (occurrence: None)
  Receive Date: 20120503
  Receipt Date: 20120430
  Transmission Date: 20120825
  Serious: No
  Sender: FDA-Public Use
  Company Number: US-TEVA-335939USA

PATIENT
  Sex: Female
  Weight: 68.1 kg

DRUGS (3)
  1. SYNTHROID [Concomitant]
     Indication: THYROID CANCER
  2. LEXAPRO [Concomitant]
     Indication: ANXIETY
  3. PLAN B ONE-STEP [Suspect]
     Indication: POST COITAL CONTRACEPTION
     Dosage: 1.5 MILLIGRAM;
     Route: 048
     Dates: start: 20120430, end: 20120430

REACTIONS (1)
  - DIARRHOEA [None]
